FAERS Safety Report 10160589 (Version 2)
Quarter: 2014Q2

REPORT INFORMATION
  Report Type: Report from Study
  Country: FR (occurrence: FR)
  Receive Date: 20140508
  Receipt Date: 20140508
  Transmission Date: 20141212
  Serious: Yes (Other)
  Sender: FDA-Public Use
  Company Number: FR-ROCHE-1073104

PATIENT
  Sex: 0

DRUGS (5)
  1. BEVACIZUMAB [Suspect]
     Indication: COLORECTAL CANCER METASTATIC
     Route: 042
  2. IRINOTECAN [Suspect]
     Indication: COLORECTAL CANCER METASTATIC
     Route: 042
  3. FLUOROURACIL [Suspect]
     Indication: COLORECTAL CANCER METASTATIC
     Route: 040
  4. FLUOROURACIL [Suspect]
     Route: 065
  5. FOLINIC ACID [Suspect]
     Indication: COLORECTAL CANCER METASTATIC
     Route: 065

REACTIONS (10)
  - Diarrhoea [Unknown]
  - Colitis [Unknown]
  - Renal failure [Unknown]
  - Gastritis [Unknown]
  - Phlebitis [Unknown]
  - Asthenia [Unknown]
  - Mucosal inflammation [Unknown]
  - Stomatitis [Unknown]
  - Nausea [Unknown]
  - Neutropenia [Unknown]
